FAERS Safety Report 5494183-2 (Version None)
Quarter: 2007Q4

REPORT INFORMATION
  Report Type: 
  Country: None (occurrence: None)
  Receive Date: 20071024
  Receipt Date: 20071016
  Transmission Date: 20080405
  Serious: Yes (Hospitalization, Other)
  Sender: FDA-Public Use
  Company Number: PHEH2007US08158

PATIENT
  Age: 49 Year
  Sex: Female

DRUGS (9)
  1. ZELNORM [Suspect]
     Indication: IRRITABLE BOWEL SYNDROME
     Dosage: 6 MG, BID
     Route: 048
     Dates: start: 20031001, end: 20070701
  2. HUMULIN 70/30 [Concomitant]
     Dosage: 40 UNITS AM/20 UNITS PM
  3. ANTIHYPERTENSIVES [Concomitant]
     Indication: HYPERTENSION
  4. DOXAZOSIN MESYLATE [Concomitant]
     Dosage: 8 MG, BID
     Route: 048
  5. ESTRADERM [Concomitant]
     Dosage: 0.1 MG TWICE WEEKLY
  6. GLUCOPHAGE [Concomitant]
     Dosage: 500 MG, BID
     Route: 048
  7. ATENOLOL [Concomitant]
     Dosage: 100 MG, QD
     Route: 048
  8. PREVACID [Concomitant]
     Dosage: 30 MG, QD
     Route: 048
  9. POTASSIUM CHLORIDE [Concomitant]

REACTIONS (7)
  - ASTHENIA [None]
  - CEREBROVASCULAR ACCIDENT [None]
  - COMPUTERISED TOMOGRAM ABNORMAL [None]
  - CONDITION AGGRAVATED [None]
  - HYPERTENSION [None]
  - LOSS OF CONSCIOUSNESS [None]
  - VOMITING [None]
